FAERS Safety Report 13362330 (Version 1)
Quarter: 2017Q1

REPORT INFORMATION
  Report Type: Report from Study
  Country: FR (occurrence: FR)
  Receive Date: 20170323
  Receipt Date: 20170323
  Transmission Date: 20170429
  Serious: Yes (Other)
  Sender: FDA-Public Use
  Company Number: FR-ASTELLAS-2017US010838

PATIENT
  Sex: Female
  Weight: 62 kg

DRUGS (1)
  1. TACROLIMUS. [Suspect]
     Active Substance: TACROLIMUS
     Indication: RENAL TRANSPLANT
     Dosage: 10 MG, ONCE DAILY (1 HOUR BEFORE OR 2 HOURS AFTER MEAL)
     Route: 065
     Dates: start: 20141029

REACTIONS (2)
  - Dialysis [Unknown]
  - Kidney transplant rejection [Unknown]
